FAERS Safety Report 5488193-9 (Version None)
Quarter: 2007Q4

REPORT INFORMATION
  Report Type: 
  Country: None (occurrence: None)
  Receive Date: 20071017
  Receipt Date: 20071009
  Transmission Date: 20080405
  Serious: Yes (Hospitalization)
  Sender: FDA-Public Use
  Company Number: AT-ELI_LILLY_AND_COMPANY-AT200710002439

PATIENT
  Sex: Female

DRUGS (7)
  1. OLANZAPINE [Suspect]
     Indication: DELUSIONAL DISORDER, PERSECUTORY TYPE
     Dosage: 10 MG, DAILY (1/D)
     Route: 048
     Dates: start: 20070922
  2. OLANZAPINE [Suspect]
     Dosage: 10 MG, DAILY (1/D)
     Route: 030
     Dates: start: 20070923
  3. PANTOLOC                           /01263201/ [Concomitant]
     Indication: PROPHYLAXIS AGAINST GASTROINTESTINAL ULCER
     Dosage: 40 MG, DAILY (1/D)
     Route: 048
     Dates: start: 20070922
  4. HALDOL [Concomitant]
     Indication: PARANOIA
     Dosage: 10 MG, DAILY (1/D)
     Route: 048
     Dates: start: 20070922
  5. PSYCHOPAX [Concomitant]
     Indication: AGITATION
     Dosage: 20 GTT, DAILY (1/D)
     Route: 048
  6. TEMESTA [Concomitant]
     Indication: AGITATION
     Dosage: 1 MG, DAILY (1/D)
     Route: 048
     Dates: start: 20070922, end: 20070926
  7. TEMESTA [Concomitant]
     Dosage: 2.5 MG, DAILY (1/D)
     Dates: start: 20070926, end: 20070926

REACTIONS (3)
  - OEDEMA PERIPHERAL [None]
  - PAIN IN EXTREMITY [None]
  - PSORIASIS [None]
